FAERS Safety Report 22046872 (Version 1)
Quarter: 2023Q1

REPORT INFORMATION
  Report Type: Report from Study
  Country: US (occurrence: US)
  Receive Date: 20230228
  Receipt Date: 20230228
  Transmission Date: 20230417
  Serious: Yes (Other)
  Sender: FDA-Public Use
  Company Number: US-ABBVIE-22K-163-4383678-00

PATIENT
  Sex: Female

DRUGS (1)
  1. IMBRUVICA [Suspect]
     Active Substance: IBRUTINIB
     Indication: Chronic lymphocytic leukaemia
     Route: 048
     Dates: start: 20210123

REACTIONS (11)
  - Myocardial infarction [Unknown]
  - Vertigo [Unknown]
  - Hyperhidrosis [Unknown]
  - Disorientation [Unknown]
  - Allergy to chemicals [Unknown]
  - Arthropod infestation [Recovering/Resolving]
  - Nausea [Unknown]
  - Rash [Unknown]
  - Blood pressure increased [Unknown]
  - Platelet count decreased [Unknown]
  - Red blood cell count decreased [Unknown]
